FAERS Safety Report 5497451-3 (Version None)
Quarter: 2007Q4

REPORT INFORMATION
  Report Type: 
  Country: None (occurrence: None)
  Receive Date: 20071025
  Receipt Date: 20061115
  Transmission Date: 20080405
  Serious: Yes (Disabling)
  Sender: FDA-Public Use
  Company Number: A0627691A

PATIENT
  Age: 79 Year
  Sex: Male

DRUGS (8)
  1. ADVAIR DISKUS 100/50 [Suspect]
     Indication: ASTHMA
     Dosage: 1PUFF TWICE PER DAY
     Route: 055
     Dates: start: 20060501
  2. FLOMAX [Concomitant]
  3. PROSCAR [Concomitant]
  4. SINGULAIR [Concomitant]
  5. IBUPROFEN [Concomitant]
  6. TYLENOL (CAPLET) [Concomitant]
  7. SYNTHROID [Concomitant]
  8. ATENOLOL [Concomitant]

REACTIONS (2)
  - DYSPHONIA [None]
  - PHARYNGITIS [None]
